FAERS Safety Report 21545247 (Version 25)
Quarter: 2024Q1

REPORT INFORMATION
  Report Type: Report from Study
  Country: IE (occurrence: IE)
  Receive Date: 20221103
  Receipt Date: 20240306
  Transmission Date: 20240409
  Serious: Yes (Hospitalization, Other)
  Sender: FDA-Public Use
  Company Number: IE-SHIRE-IE202009941

PATIENT
  Age: 7 Year
  Sex: Male

DRUGS (40)
  1. IDURSULFASE [Suspect]
     Active Substance: IDURSULFASE
     Indication: Mucopolysaccharidosis II
     Dosage: 12 MILLIGRAM, Q2WEEKS
     Route: 042
     Dates: start: 20151008
  2. IDURSULFASE [Suspect]
     Active Substance: IDURSULFASE
     Dosage: 6 MILLIGRAM, Q2WEEKS
     Route: 042
  3. IDURSULFASE [Suspect]
     Active Substance: IDURSULFASE
     Dosage: 12 MILLIGRAM, Q2WEEKS
     Route: 042
  4. IDURSULFASE [Suspect]
     Active Substance: IDURSULFASE
     Dosage: 6 MILLIGRAM, Q2WEEKS
     Route: 042
     Dates: start: 20200324
  5. IDURSULFASE [Suspect]
     Active Substance: IDURSULFASE
     Dosage: 6 MILLIGRAM, Q2WEEKS
     Route: 042
  6. IDURSULFASE [Suspect]
     Active Substance: IDURSULFASE
     Dosage: 6 MILLIGRAM, Q2WEEKS
     Route: 042
     Dates: start: 20201007
  7. IDURSULFASE [Suspect]
     Active Substance: IDURSULFASE
     Dosage: 6 MILLIGRAM, Q2WEEKS
     Route: 042
     Dates: start: 20201012
  8. IDURSULFASE [Suspect]
     Active Substance: IDURSULFASE
     Dosage: 12 MILLIGRAM
     Route: 042
     Dates: start: 20210301
  9. IDURSULFASE [Suspect]
     Active Substance: IDURSULFASE
     Dosage: 12 MILLIGRAM
     Route: 042
     Dates: start: 20210609
  10. IDURSULFASE [Suspect]
     Active Substance: IDURSULFASE
     Dosage: 12 MILLIGRAM, Q2WEEKS
     Route: 042
     Dates: start: 20210818
  11. IDURSULFASE [Suspect]
     Active Substance: IDURSULFASE
     Dosage: 12 MILLIGRAM, Q2WEEKS
     Route: 042
     Dates: start: 20210826
  12. IDURSULFASE [Suspect]
     Active Substance: IDURSULFASE
     Dosage: 6 MILLIGRAM, Q2WEEKS
     Route: 042
     Dates: start: 20210901
  13. IDURSULFASE [Suspect]
     Active Substance: IDURSULFASE
     Dosage: 6 MILLIGRAM, Q2WEEKS
     Route: 042
     Dates: start: 20211117
  14. IDURSULFASE [Suspect]
     Active Substance: IDURSULFASE
     Dosage: 12 MILLIGRAM, Q2WEEKS
     Route: 042
  15. IDURSULFASE [Suspect]
     Active Substance: IDURSULFASE
     Dosage: 6 MILLIGRAM, Q2WEEKS
     Route: 042
     Dates: start: 20220329
  16. IDURSULFASE [Suspect]
     Active Substance: IDURSULFASE
     Dosage: 12 MILLIGRAM, Q2WEEKS
     Route: 042
     Dates: start: 20220413
  17. IDURSULFASE [Suspect]
     Active Substance: IDURSULFASE
     Dosage: 12 MILLIGRAM, Q2WEEKS
     Route: 042
     Dates: start: 20220517
  18. IDURSULFASE [Suspect]
     Active Substance: IDURSULFASE
     Dosage: 12 MILLIGRAM, Q2WEEKS
     Route: 042
     Dates: start: 20220905
  19. IDURSULFASE [Suspect]
     Active Substance: IDURSULFASE
     Dosage: 6 MILLIGRAM, Q2WEEKS
     Route: 042
     Dates: start: 20220914
  20. IDURSULFASE [Suspect]
     Active Substance: IDURSULFASE
     Dosage: 12 MILLIGRAM, Q2WEEKS
     Route: 042
     Dates: start: 20221026
  21. IDURSULFASE [Suspect]
     Active Substance: IDURSULFASE
     Dosage: 6 MILLIGRAM, Q2WEEKS
     Route: 042
  22. IDURSULFASE [Suspect]
     Active Substance: IDURSULFASE
     Dosage: 12 MILLIGRAM, Q2WEEKS
     Route: 042
     Dates: start: 20221123
  23. IDURSULFASE [Suspect]
     Active Substance: IDURSULFASE
     Dosage: 6 MILLIGRAM, Q2WEEKS
     Route: 042
  24. IDURSULFASE [Suspect]
     Active Substance: IDURSULFASE
     Dosage: 12 MILLIGRAM, Q2WEEKS
     Route: 042
  25. IDURSULFASE [Suspect]
     Active Substance: IDURSULFASE
     Dosage: 12 MILLIGRAM, Q2WEEKS
     Route: 042
     Dates: start: 20221219
  26. IDURSULFASE [Suspect]
     Active Substance: IDURSULFASE
     Dosage: UNK UNK, Q2WEEKS
     Route: 042
  27. IDURSULFASE [Suspect]
     Active Substance: IDURSULFASE
     Dosage: 6 MILLIGRAM, 1/WEEK
     Route: 050
  28. IDURSULFASE [Suspect]
     Active Substance: IDURSULFASE
     Dosage: 12 MILLIGRAM, 1/WEEK
     Route: 050
  29. IDURSULFASE [Suspect]
     Active Substance: IDURSULFASE
     Dosage: 12 MILLIGRAM, 1/WEEK
     Route: 042
  30. IDURSULFASE [Suspect]
     Active Substance: IDURSULFASE
     Dosage: 12 MILLIGRAM, 1/WEEK
     Route: 042
  31. IDURSULFASE [Suspect]
     Active Substance: IDURSULFASE
     Dosage: 12 MILLIGRAM, 1/WEEK
     Route: 042
  32. IDURSULFASE [Suspect]
     Active Substance: IDURSULFASE
     Dosage: 12 MILLIGRAM, QD
     Route: 042
  33. IDURSULFASE [Suspect]
     Active Substance: IDURSULFASE
     Dosage: 12 MILLIGRAM, 1/WEEK
     Route: 042
  34. IDURSULFASE [Suspect]
     Active Substance: IDURSULFASE
     Dosage: 12 MILLIGRAM, 1/WEEK
     Route: 042
  35. EMLA [Concomitant]
     Active Substance: LIDOCAINE\PRILOCAINE
     Dosage: 1 DOSAGE FORM
     Route: 050
  36. ACETAMINOPHEN [Concomitant]
     Active Substance: ACETAMINOPHEN
     Dosage: 180 MILLIGRAM
     Route: 050
  37. CHLORPHENIRAMINE MALEATE [Concomitant]
     Active Substance: CHLORPHENIRAMINE MALEATE
     Dosage: 2.5 MILLIGRAM
     Route: 050
  38. SALINE [Concomitant]
     Active Substance: SODIUM CHLORIDE
     Dosage: 2.5 MILLILITER
     Route: 050
  39. NEOCLARITYN [Concomitant]
     Active Substance: DESLORATADINE
     Dosage: 1.25 MILLIGRAM
     Route: 050
  40. HEPARIN SODIUM [Concomitant]
     Active Substance: HEPARIN SODIUM
     Dosage: 30 INTERNATIONAL UNIT, 1/WEEK
     Route: 042

REACTIONS (24)
  - Swelling [Not Recovered/Not Resolved]
  - Device physical property issue [Not Recovered/Not Resolved]
  - Cough [Not Recovered/Not Resolved]
  - Coeliac disease [Unknown]
  - Crohn^s disease [Unknown]
  - Pain [Not Recovered/Not Resolved]
  - Lower respiratory tract infection [Recovering/Resolving]
  - Oropharyngeal pain [Not Recovered/Not Resolved]
  - Malaise [Not Recovered/Not Resolved]
  - Nasopharyngitis [Not Recovered/Not Resolved]
  - Catheter site bruise [Recovered/Resolved]
  - Infusion site dryness [Recovering/Resolving]
  - Rash macular [Recovered/Resolved]
  - Poor venous access [Not Recovered/Not Resolved]
  - Eczema [Recovering/Resolving]
  - Fatigue [Recovering/Resolving]
  - Viral infection [Recovering/Resolving]
  - Rhinorrhoea [Not Recovered/Not Resolved]
  - COVID-19 [Recovered/Resolved]
  - Ear infection [Recovering/Resolving]
  - Suspected product quality issue [Unknown]
  - Pyrexia [Recovered/Resolved]
  - Product dose omission issue [Not Recovered/Not Resolved]
  - Inappropriate schedule of product administration [Recovered/Resolved]

NARRATIVE: CASE EVENT DATE: 20210609
